FAERS Safety Report 21471477 (Version 2)
Quarter: 2022Q4

REPORT INFORMATION
  Report Type: Spontaneous
  Country: US (occurrence: US)
  Receive Date: 20221018
  Receipt Date: 20221027
  Transmission Date: 20230113
  Serious: Yes (Other)
  Sender: FDA-Public Use
  Company Number: US-PFIZER INC-PV202200078138

PATIENT
  Age: 63 Year
  Sex: Male

DRUGS (8)
  1. CEFEPIME HYDROCHLORIDE [Suspect]
     Active Substance: CEFEPIME HYDROCHLORIDE
     Indication: Pneumonia
     Dosage: UNK
  2. TOCILIZUMAB [Suspect]
     Active Substance: TOCILIZUMAB
     Indication: Lung opacity
     Dosage: UNK (SECOND DOSE)
  3. TOCILIZUMAB [Suspect]
     Active Substance: TOCILIZUMAB
     Indication: Pneumonia
     Dosage: UNK(LATER RECEIVED A DOSE)
  4. TOCILIZUMAB [Suspect]
     Active Substance: TOCILIZUMAB
     Indication: COVID-19 treatment
  5. REMDESIVIR [Concomitant]
     Active Substance: REMDESIVIR
     Indication: Lung opacity
     Dosage: UNK
  6. REMDESIVIR [Concomitant]
     Active Substance: REMDESIVIR
     Indication: COVID-19
  7. DECADRON [Concomitant]
     Active Substance: DEXAMETHASONE
     Indication: Lung opacity
     Dosage: UNK
  8. DECADRON [Concomitant]
     Active Substance: DEXAMETHASONE
     Indication: COVID-19

REACTIONS (2)
  - Drug ineffective [Unknown]
  - Acute respiratory distress syndrome [Unknown]
